FAERS Safety Report 13346136 (Version 2)
Quarter: 2017Q2

REPORT INFORMATION
  Report Type: Spontaneous
  Country: US (occurrence: US)
  Receive Date: 20170317
  Receipt Date: 20170501
  Transmission Date: 20170830
  Serious: No
  Sender: FDA-Public Use
  Company Number: US-SHIRE-US201705889

PATIENT
  Age: 64 Year
  Sex: Female
  Weight: 66.67 kg

DRUGS (4)
  1. XIIDRA [Suspect]
     Active Substance: LIFITEGRAST
     Indication: DRY EYE
     Dosage: 1 GTT IN EACH EYE, 2X/DAY:BID
     Route: 047
     Dates: start: 201612, end: 20170314
  2. REFRESH TEARS [Concomitant]
     Active Substance: CARBOXYMETHYLCELLULOSE SODIUM
     Indication: DRY EYE
     Dosage: UNK, AS REQ^D
     Route: 047
  3. LISINOPRIL + HIDROCLOROTIAZIDA [Concomitant]
     Active Substance: HYDROCHLOROTHIAZIDE\LISINOPRIL
     Indication: HYPERTENSION
     Dosage: 10MG/17.5MG, 1X/DAY:QD
     Route: 048
  4. LEVOTHYROXINE. [Concomitant]
     Active Substance: LEVOTHYROXINE
     Indication: THYROID DISORDER
     Dosage: 75 ?G, 1X/DAY:QD
     Route: 048

REACTIONS (10)
  - Rash [Not Recovered/Not Resolved]
  - Instillation site pain [Not Recovered/Not Resolved]
  - Incorrect dose administered [Unknown]
  - Rash macular [Not Recovered/Not Resolved]
  - Formication [Not Recovered/Not Resolved]
  - Urticaria [Not Recovered/Not Resolved]
  - Instillation site erythema [Recovered/Resolved]
  - Product quality issue [Unknown]
  - Instillation site pruritus [Recovered/Resolved]
  - Dysgeusia [Recovered/Resolved]

NARRATIVE: CASE EVENT DATE: 201612
